FAERS Safety Report 19139913 (Version 1)
Quarter: 2021Q2

REPORT INFORMATION
  Report Type: Spontaneous
  Country: US (occurrence: US)
  Receive Date: 20210415
  Receipt Date: 20210415
  Transmission Date: 20210717
  Serious: Yes (Hospitalization)
  Sender: FDA-Public Use
  Company Number: None

PATIENT
  Sex: Male

DRUGS (16)
  1. PRALUENT [Suspect]
     Active Substance: ALIROCUMAB
     Indication: TYPE V HYPERLIPIDAEMIA
     Dosage: ?          OTHER DOSE:1 PEN;?
     Route: 058
     Dates: start: 20190311
  2. METOPROLOL ER [Concomitant]
     Active Substance: METOPROLOL SUCCINATE
  3. LEVOFLOXACIN. [Concomitant]
     Active Substance: LEVOFLOXACIN
  4. METOPROL SUC ER, [Concomitant]
  5. SERTRALINE [Concomitant]
     Active Substance: SERTRALINE HYDROCHLORIDE
  6. POLYETH GLYC [Concomitant]
     Active Substance: POLYETHYLENE GLYCOLS
  7. VENTOLIN HFA [Concomitant]
     Active Substance: ALBUTEROL SULFATE
  8. AMO /K CLAV [Concomitant]
  9. XARELTO [Concomitant]
     Active Substance: RIVAROXABAN
  10. IVERMECTIN. [Concomitant]
     Active Substance: IVERMECTIN
  11. TRAZODONE [Concomitant]
     Active Substance: TRAZODONE HYDROCHLORIDE
  12. METHYLPRED [Concomitant]
     Active Substance: METHYLPREDNISOLONE
  13. RANOLAZINE. [Concomitant]
     Active Substance: RANOLAZINE
  14. TOBRAMYCIN. [Concomitant]
     Active Substance: TOBRAMYCIN
  15. SUCRALFATE. [Concomitant]
     Active Substance: SUCRALFATE
  16. ISOSORBID MONO [Concomitant]

REACTIONS (2)
  - Pneumonia [None]
  - COVID-19 [None]
